FAERS Safety Report 17053710 (Version 1)
Quarter: 2019Q4

REPORT INFORMATION
  Report Type: Spontaneous
  Country: SE (occurrence: SE)
  Receive Date: 20191120
  Receipt Date: 20191120
  Transmission Date: 20200122
  Serious: Yes (Hospitalization)
  Sender: FDA-Public Use
  Company Number: SE-MYLANLABS-2019M1110456

PATIENT
  Age: 14 Year
  Sex: Female

DRUGS (1)
  1. LERGIGAN 25 MG FILMDRAGERADE TABLETTER [Suspect]
     Active Substance: PROMETHAZINE HYDROCHLORIDE
     Indication: PRODUCT USED FOR UNKNOWN INDICATION
     Dosage: UNK (15-20 ST)
     Route: 048
     Dates: start: 20190521, end: 20190521

REACTIONS (9)
  - Intentional overdose [Unknown]
  - Palpitations [Recovered/Resolved]
  - Abdominal pain [Unknown]
  - Intentional self-injury [Unknown]
  - Restlessness [Unknown]
  - Toxicity to various agents [Unknown]
  - Mydriasis [Unknown]
  - Hyperhidrosis [Recovered/Resolved]
  - Dizziness [Unknown]

NARRATIVE: CASE EVENT DATE: 20190521
